FAERS Safety Report 8428286-7 (Version None)
Quarter: 2012Q2

REPORT INFORMATION
  Report Type: 
  Country: None (occurrence: None)
  Receive Date: 20120611
  Receipt Date: 20120605
  Transmission Date: 20120825
  Serious: Yes (Disabling)
  Sender: FDA-Public Use
  Company Number: US-MERCK-1206USA00826

PATIENT
  Age: 62 Year
  Sex: Female

DRUGS (1)
  1. FOSAMAX [Suspect]
     Route: 048
     Dates: start: 19990101, end: 20090101

REACTIONS (6)
  - PAIN [None]
  - ANXIETY [None]
  - MULTIPLE INJURIES [None]
  - ANHEDONIA [None]
  - ECONOMIC PROBLEM [None]
  - FEMUR FRACTURE [None]
